FAERS Safety Report 4871195-0 (Version None)
Quarter: 2005Q4

REPORT INFORMATION
  Report Type: 
  Country: None (occurrence: None)
  Receive Date: 20051229
  Receipt Date: 20051213
  Transmission Date: 20060501
  Serious: Yes (Other)
  Sender: FDA-Public Use
  Company Number: USA0510110845

PATIENT
  Sex: Female

DRUGS (1)
  1. CYMBALTA [Suspect]
     Dosage: 60 UNK, ORAL
     Route: 048

REACTIONS (2)
  - CARDIAC DEATH [None]
  - ELECTROCARDIOGRAM QT CORRECTED INTERVAL PROLONGED [None]
